FAERS Safety Report 9856052 (Version 1)
Quarter: 2014Q1

REPORT INFORMATION
  Report Type: Spontaneous
  Country: GB (occurrence: GB)
  Receive Date: 20140130
  Receipt Date: 20140130
  Transmission Date: 20141002
  Serious: Yes (Other)
  Sender: FDA-Public Use
  Company Number: GB-ROCHE-1340010

PATIENT
  Age: 25 Year
  Sex: Female

DRUGS (1)
  1. BEVACIZUMAB [Suspect]
     Indication: DIABETIC RETINOPATHY
     Route: 050

REACTIONS (3)
  - Pre-eclampsia [Unknown]
  - Pregnancy [Unknown]
  - Off label use [Unknown]
